FAERS Safety Report 9682962 (Version 1)
Quarter: 2013Q4

REPORT INFORMATION
  Report Type: Spontaneous
  Country: US (occurrence: US)
  Receive Date: 20131112
  Receipt Date: 20131112
  Transmission Date: 20140711
  Serious: Yes (Other)
  Sender: FDA-Public Use
  Company Number: US-AMGEN-USASP2013078730

PATIENT
  Age: 72 Year
  Sex: Male

DRUGS (1)
  1. SENSIPAR [Suspect]
     Indication: PRODUCT USED FOR UNKNOWN INDICATION
     Dosage: 60 MG, QD
     Route: 065
     Dates: start: 200905, end: 201207

REACTIONS (3)
  - Convulsion [Recovered/Resolved]
  - Amnesia [Recovered/Resolved]
  - Dysarthria [Recovered/Resolved]
